FAERS Safety Report 9707276 (Version 1)
Quarter: 2013Q4

REPORT INFORMATION
  Report Type: Spontaneous
  Country: US (occurrence: US)
  Receive Date: 20131125
  Receipt Date: 20131125
  Transmission Date: 20140711
  Serious: No
  Sender: FDA-Public Use
  Company Number: US-009507513-1311USA010355

PATIENT
  Sex: 0

DRUGS (2)
  1. PRINIVIL [Suspect]
     Dosage: UNK
     Route: 048
  2. WELLBUTRIN [Suspect]

REACTIONS (2)
  - Hallucination [Recovered/Resolved]
  - Transient ischaemic attack [Recovered/Resolved]
